FAERS Safety Report 24156253 (Version 2)
Quarter: 2024Q3

REPORT INFORMATION
  Report Type: Spontaneous
  Country: PT (occurrence: PT)
  Receive Date: 20240731
  Receipt Date: 20240814
  Transmission Date: 20241017
  Serious: Yes (Hospitalization, Other)
  Sender: SS PHARMA
  Company Number: PT-SSPHARMA-2024PTSSP00071

PATIENT
  Age: 40 Year
  Sex: Female

DRUGS (1)
  1. BROMOCRIPTINE MESYLATE [Suspect]
     Active Substance: BROMOCRIPTINE MESYLATE
     Indication: Lactation puerperal increased

REACTIONS (1)
  - Drug-induced liver injury [Recovering/Resolving]
